FAERS Safety Report 9961312 (Version 2)
Quarter: 2014Q2

REPORT INFORMATION
  Report Type: Report from Study
  Country: US (occurrence: US)
  Receive Date: 20140305
  Receipt Date: 20140528
  Transmission Date: 20141212
  Serious: Yes (Death)
  Sender: FDA-Public Use
  Company Number: US-SA-2014SA027785

PATIENT
  Age: 47 Year
  Sex: Male
  Weight: 92.9 kg

DRUGS (12)
  1. CAMPATH [Suspect]
     Indication: ACUTE LYMPHOCYTIC LEUKAEMIA
     Route: 065
     Dates: start: 20140117, end: 20140126
  2. ZOVIRAX [Concomitant]
     Route: 048
  3. SALBUTAMOL SULFATE [Concomitant]
     Indication: DYSPNOEA
     Route: 055
  4. LIORESAL [Concomitant]
     Route: 048
  5. COLACE [Concomitant]
     Route: 048
  6. NEURONTIN [Concomitant]
     Route: 048
  7. CLARITIN [Concomitant]
     Route: 048
  8. ZYPREXA [Concomitant]
     Route: 048
  9. ZYPREXA [Concomitant]
     Dosage: EVERY MORNING AT 7:00 AM
     Route: 048
  10. PROTONIX [Concomitant]
     Route: 048
  11. SPIRIVA [Concomitant]
     Route: 055
  12. MEROPENEM [Concomitant]
     Indication: FEBRILE NEUTROPENIA

REACTIONS (1)
  - Death [Fatal]
